FAERS Safety Report 11053665 (Version 6)
Quarter: 2021Q2

REPORT INFORMATION
  Report Type: Spontaneous
  Country: US (occurrence: US)
  Receive Date: 20150421
  Receipt Date: 20210530
  Transmission Date: 20210716
  Serious: No
  Sender: FDA-Public Use
  Company Number: US-JNJFOC-20150322352

PATIENT
  Age: 1 Decade
  Sex: Male

DRUGS (6)
  1. RISPERDAL [Suspect]
     Active Substance: RISPERIDONE
     Route: 048
     Dates: end: 2008
  2. RISPERDAL [Suspect]
     Active Substance: RISPERIDONE
     Indication: OBSESSIVE-COMPULSIVE DISORDER
     Route: 048
     Dates: start: 20000411
  3. RISPERDAL [Suspect]
     Active Substance: RISPERIDONE
     Indication: ATTENTION DEFICIT HYPERACTIVITY DISORDER
     Route: 048
     Dates: start: 1996
  4. RISPERDAL [Suspect]
     Active Substance: RISPERIDONE
     Indication: ATTENTION DEFICIT HYPERACTIVITY DISORDER
     Route: 048
     Dates: start: 20030124
  5. RISPERDAL [Suspect]
     Active Substance: RISPERIDONE
     Route: 048
     Dates: end: 2009
  6. RISPERIDONE. [Suspect]
     Active Substance: RISPERIDONE
     Indication: PRODUCT USED FOR UNKNOWN INDICATION
     Route: 048

REACTIONS (5)
  - Off label use [Unknown]
  - Emotional disorder [Unknown]
  - Abnormal weight gain [Unknown]
  - Product use in unapproved indication [Unknown]
  - Gynaecomastia [Unknown]

NARRATIVE: CASE EVENT DATE: 1996
